FAERS Safety Report 9018836 (Version 3)
Quarter: 2013Q1

REPORT INFORMATION
  Report Type: Report from Study
  Country: US (occurrence: US)
  Receive Date: 20130118
  Receipt Date: 20130327
  Transmission Date: 20140127
  Serious: Yes (Other)
  Sender: FDA-Public Use
  Company Number: US-BAXTER-2013BAX002344

PATIENT
  Sex: Female
  Weight: 127.12 kg

DRUGS (10)
  1. GAMMAGARD LIQUID [Suspect]
     Indication: IMMUNODEFICIENCY COMMON VARIABLE
     Route: 042
     Dates: start: 20110907
  2. AMLODIPINE [Concomitant]
     Indication: HYPERTENSION
     Route: 048
     Dates: start: 20090310
  3. HYDROCHLOROTHIAZIDE [Concomitant]
     Indication: HYPERTENSION
     Route: 048
     Dates: start: 20090330
  4. VITAMIN D [Concomitant]
     Indication: VITAMIN D DEFICIENCY
     Route: 048
     Dates: start: 201207
  5. QVAR [Concomitant]
     Indication: ASTHMA
     Route: 048
  6. DULERA [Concomitant]
     Indication: ASTHMA
     Dosage: 4 PUFFS
     Route: 048
  7. PREDNISONE [Concomitant]
     Indication: ASTHMA
     Dates: start: 201212
  8. PREDNISONE [Concomitant]
     Indication: PAIN
  9. ALBUTEROL [Concomitant]
     Indication: ASTHMA
     Dosage: 2.5MG/3ML
  10. POTASSIUM [Concomitant]
     Indication: PRODUCT USED FOR UNKNOWN INDICATION
     Dates: start: 201207

REACTIONS (6)
  - Sinusitis [Recovering/Resolving]
  - Pain [Recovering/Resolving]
  - Headache [Recovering/Resolving]
  - Diarrhoea [Not Recovered/Not Resolved]
  - Constipation [Not Recovered/Not Resolved]
  - Photophobia [Unknown]
